FAERS Safety Report 5232159-0 (Version None)
Quarter: 2007Q1

REPORT INFORMATION
  Report Type: 
  Country: None (occurrence: None)
  Receive Date: 20061205
  Receipt Date: 20060806
  Transmission Date: 20070707
  Serious: No
  Sender: FDA-Public Use
  Company Number: PHEH2006US11381

PATIENT
  Age: 85 Year
  Sex: Female

DRUGS (8)
  1. EXJADE [Suspect]
     Indication: IRON OVERLOAD
     Dosage: 1000 MG,QD,ORAL
     Route: 048
     Dates: start: 20060701
  2. TOPROL-XL [Concomitant]
  3. ZOLOFT [Concomitant]
  4. FOLIC ACID [Concomitant]
  5. SYNTHROD (LEVOTHYROXINE) [Concomitant]
  6. COUMADIN [Concomitant]
  7. ORAP [Concomitant]
  8. MACROBID [Concomitant]

REACTIONS (2)
  - ABNORMAL FAECES [None]
  - FAECES DISCOLOURED [None]
